FAERS Safety Report 21212767 (Version 1)
Quarter: 2022Q3

REPORT INFORMATION
  Report Type: Spontaneous
  Country: US (occurrence: US)
  Receive Date: 20220815
  Receipt Date: 20220815
  Transmission Date: 20221027
  Serious: Yes (Other)
  Sender: FDA-Public Use
  Company Number: US-OTSUKA-2022_040180

PATIENT

DRUGS (1)
  1. ABILIFY MAINTENA [Suspect]
     Active Substance: ARIPIPRAZOLE
     Indication: Product used for unknown indication
     Dosage: UNK
     Route: 065

REACTIONS (4)
  - Paralysis [Unknown]
  - Apnoea [Unknown]
  - Anaphylactic reaction [Unknown]
  - Drug hypersensitivity [Unknown]

NARRATIVE: CASE EVENT DATE: 20120101
